FAERS Safety Report 5836911-X (Version None)
Quarter: 2008Q3

REPORT INFORMATION
  Report Type: 
  Country: None (occurrence: None)
  Receive Date: 20080807
  Receipt Date: 20080730
  Transmission Date: 20090109
  Serious: Yes (Hospitalization)
  Sender: FDA-Public Use
  Company Number: PHHO2008DE05231

PATIENT
  Sex: Female

DRUGS (10)
  1. CGS 20267 T30748+TAB [Suspect]
     Indication: BREAST CANCER
     Dosage: 2.5 MG, QD
     Route: 048
     Dates: start: 20061117
  2. EUTHYROX [Concomitant]
     Indication: HYPOTHYROIDISM
  3. AMIODARONE HCL [Concomitant]
     Indication: CARDIOMYOPATHY
  4. METOPROLOL SUCCINATE [Concomitant]
     Indication: HYPERTENSION
  5. ENALAPRIL MALEATE [Concomitant]
     Indication: HYPERTENSION
  6. NORVASK [Concomitant]
     Indication: HYPERTENSION
  7. SPIRONOLACTONE [Concomitant]
     Indication: HYPERTENSION
  8. MARCUMAR [Concomitant]
     Indication: CARDIOMYOPATHY
  9. KALINOR [Concomitant]
     Indication: HYPOKALAEMIA
  10. RADIOTHERAPY [Concomitant]

REACTIONS (2)
  - TACHYARRHYTHMIA [None]
  - TACHYCARDIA [None]
